FAERS Safety Report 7610504-6 (Version None)
Quarter: 2011Q3

REPORT INFORMATION
  Report Type: 
  Country: None (occurrence: None)
  Receive Date: 20110707
  Receipt Date: 20110624
  Transmission Date: 20111222
  Serious: Yes (Hospitalization, Other)
  Sender: FDA-Public Use
  Company Number: US-2011-10438

PATIENT
  Age: 9 Year
  Sex: Female

DRUGS (6)
  1. ANTI-THYMOCYTE GLOBULIN NOS [Concomitant]
  2. BUSULFAN [Suspect]
     Indication: BONE MARROW TRANSPLANT
     Dosage: , INTRAVENOUS
     Route: 042
  3. TACROLIMUS [Concomitant]
  4. CYCLOSPORINE [Concomitant]
  5. PHENYTOIN [Concomitant]
  6. FLUDARABINE PHOSPHATE [Suspect]
     Indication: BONE MARROW TRANSPLANT

REACTIONS (9)
  - ACUTE GRAFT VERSUS HOST DISEASE IN SKIN [None]
  - BONE MARROW TRANSPLANT [None]
  - GENERAL PHYSICAL HEALTH DETERIORATION [None]
  - HEPATITIS [None]
  - PANCYTOPENIA [None]
  - TRANSPLANT FAILURE [None]
  - CONVULSION [None]
  - SURGICAL PROCEDURE REPEATED [None]
  - DERMATITIS [None]
